FAERS Safety Report 7028266-2 (Version None)
Quarter: 2010Q4

REPORT INFORMATION
  Report Type: 
  Country: None (occurrence: None)
  Receive Date: 20101005
  Receipt Date: 20100923
  Transmission Date: 20110411
  Serious: Yes (Other)
  Sender: FDA-Public Use
  Company Number: FR-PFIZER INC-2010120651

PATIENT
  Age: 52 Year
  Sex: Female

DRUGS (1)
  1. AROMASIN [Suspect]
     Dosage: UNK

REACTIONS (3)
  - ARTHRALGIA [None]
  - MUSCULOSKELETAL DISORDER [None]
  - MYALGIA [None]
